FAERS Safety Report 8130057-6 (Version None)
Quarter: 2012Q1

REPORT INFORMATION
  Report Type: 
  Country: None (occurrence: None)
  Receive Date: 20120210
  Receipt Date: 20120127
  Transmission Date: 20120608
  Serious: Yes (Death, Hospitalization)
  Sender: FDA-Public Use
  Company Number: US-ROCHE-1026813

PATIENT
  Sex: Female
  Weight: 58.6 kg

DRUGS (1)
  1. VEMURAFENIB [Suspect]
     Indication: THYROID CANCER
     Route: 048
     Dates: start: 20111216

REACTIONS (1)
  - DYSPNOEA [None]
